FAERS Safety Report 8854647 (Version 1)
Quarter: 2012Q4

REPORT INFORMATION
  Report Type: Report from Study
  Country: US (occurrence: US)
  Receive Date: 20121023
  Receipt Date: 20121023
  Transmission Date: 20130627
  Serious: Yes (Hospitalization)
  Sender: FDA-Public Use
  Company Number: US-JNJFOC-20121008616

PATIENT
  Age: 68 Year
  Sex: Male

DRUGS (25)
  1. ACETAMINOPHEN [Suspect]
     Route: 065
  2. ACETAMINOPHEN [Suspect]
     Indication: PAIN
     Route: 065
     Dates: start: 20121005
  3. FLUOCINONIDE [Concomitant]
     Route: 065
  4. TRAMADOL [Concomitant]
     Route: 065
  5. TRYPSIN BALSAM PERU AND CASTOR OIL [Concomitant]
     Route: 065
  6. ALPRAZOLAM [Concomitant]
     Route: 065
  7. ASPIRIN [Concomitant]
     Route: 065
  8. BUMETANIDE [Concomitant]
     Route: 065
  9. DOFETILIDE [Concomitant]
     Route: 065
  10. FERROUS SULPHATE [Concomitant]
     Route: 065
  11. GLIPIZIDE [Concomitant]
     Route: 065
  12. LISINOPRIL [Concomitant]
     Route: 065
  13. METOLAZONE [Concomitant]
     Route: 065
  14. METOPROLOL SUCCINATE [Concomitant]
     Route: 065
  15. MEXILETINE [Concomitant]
     Route: 065
  16. PRAVASTATIN [Concomitant]
     Route: 065
  17. WARFARIN [Concomitant]
     Route: 065
  18. COUMADIN [Concomitant]
     Route: 065
  19. PRAVACHOL [Concomitant]
     Route: 065
  20. EUCERIN [Concomitant]
     Route: 065
  21. GLUCOTROL [Concomitant]
     Route: 065
  22. BUMEX [Concomitant]
     Route: 065
  23. IRON [Concomitant]
     Route: 065
  24. XANAX [Concomitant]
     Route: 065
  25. TOPROL-XL [Concomitant]
     Route: 065

REACTIONS (1)
  - Foot fracture [Recovered/Resolved]
